FAERS Safety Report 15984937 (Version 1)
Quarter: 2019Q1

REPORT INFORMATION
  Report Type: Spontaneous
  Country: US (occurrence: US)
  Receive Date: 20190219
  Receipt Date: 20190219
  Transmission Date: 20190418
  Serious: Yes (Hospitalization)
  Sender: FDA-Public Use
  Company Number: None

PATIENT
  Age: 43 Year
  Sex: Female
  Weight: 72 kg

DRUGS (10)
  1. DILAUDID [Concomitant]
     Active Substance: HYDROMORPHONE HYDROCHLORIDE
  2. LYRICA [Concomitant]
     Active Substance: PREGABALIN
  3. MAGIC MOUTHWASH [Concomitant]
     Active Substance: DIPHENHYDRAMINE HYDROCHLORIDE\LIDOCAINE HYDROCHLORIDE\NYSTATIN
  4. ONDANSETRON [Concomitant]
     Active Substance: ONDANSETRON
  5. IBRANCE [Suspect]
     Active Substance: PALBOCICLIB
     Indication: BREAST CANCER
     Route: 048
  6. LEVOTHYROXINE. [Concomitant]
     Active Substance: LEVOTHYROXINE
  7. CLONAZEPAM. [Concomitant]
     Active Substance: CLONAZEPAM
  8. COMBIVENT [Concomitant]
     Active Substance: ALBUTEROL SULFATE\IPRATROPIUM BROMIDE
  9. PROCHLORPERAZINE. [Concomitant]
     Active Substance: PROCHLORPERAZINE
  10. OXYMORPHONE [Concomitant]
     Active Substance: OXYMORPHONE

REACTIONS (1)
  - Haemoglobin decreased [None]

NARRATIVE: CASE EVENT DATE: 20190205
